FAERS Safety Report 4764210-6 (Version None)
Quarter: 2005Q3

REPORT INFORMATION
  Report Type: 
  Country: None (occurrence: None)
  Receive Date: 20050906
  Receipt Date: 20050601
  Transmission Date: 20060218
  Serious: No
  Sender: FDA-Public Use
  Company Number: 2005-BP-09089BP

PATIENT
  Age: 62 Year
  Sex: Female
  Weight: 60.8 kg

DRUGS (1)
  1. SPIRIVA [Suspect]
     Indication: CHRONIC OBSTRUCTIVE PULMONARY DISEASE
     Dosage: 1 CAPSULE QD (18 MCG, QD) IH
     Route: 055
     Dates: start: 20050501, end: 20050523

REACTIONS (1)
  - RASH PRURITIC [None]
